FAERS Safety Report 6086454-6 (Version None)
Quarter: 2009Q1

REPORT INFORMATION
  Report Type: 
  Country: None (occurrence: None)
  Receive Date: 20090223
  Receipt Date: 20090220
  Transmission Date: 20090719
  Serious: Yes (Other)
  Sender: FDA-Public Use
  Company Number: HQWYE937816AUG05

PATIENT
  Sex: Male

DRUGS (12)
  1. SIROLIMUS [Suspect]
     Indication: PROPHYLAXIS AGAINST TRANSPLANT REJECTION
     Route: 048
     Dates: start: 20041001
  2. PREDNISONE [Suspect]
     Indication: PROPHYLAXIS AGAINST TRANSPLANT REJECTION
     Route: 048
     Dates: start: 20040902
  3. TOPROL-XL [Concomitant]
     Dosage: NOT PROVIDED
     Route: 065
     Dates: start: 20040615
  4. PEPCID [Concomitant]
     Dosage: NOT PROVIDED
     Route: 065
     Dates: start: 20040718
  5. CLONIDINE [Concomitant]
     Dosage: NOT PROVIDED
     Route: 065
     Dates: start: 20040615
  6. COUMADIN [Concomitant]
     Dosage: NOT PROVIDED
     Route: 065
     Dates: start: 20040916
  7. LOTENSIN [Concomitant]
     Dosage: NOT PROVIDED
     Route: 065
     Dates: start: 20041209
  8. LIPITOR [Concomitant]
     Dosage: NOT PROVIDED
     Route: 065
     Dates: start: 20050124
  9. ZETIA [Concomitant]
     Dosage: NOT PROVIDED
     Route: 065
     Dates: start: 20041122
  10. BACTRIM [Concomitant]
     Dosage: NOT PROVIDED
     Route: 065
     Dates: start: 20040719
  11. MYCOPHENOLATE MOFETIL [Suspect]
     Indication: PROPHYLAXIS AGAINST TRANSPLANT REJECTION
     Route: 048
     Dates: start: 20041112
  12. CELEXA [Concomitant]
     Dosage: NOT PROVIDED
     Route: 065
     Dates: start: 20040729

REACTIONS (1)
  - PROSTATE CANCER [None]
